FAERS Safety Report 13089369 (Version 3)
Quarter: 2019Q2

REPORT INFORMATION
  Report Type: Spontaneous
  Country: US (occurrence: US)
  Receive Date: 20170105
  Receipt Date: 20190401
  Transmission Date: 20190711
  Serious: No
  Sender: FDA-Public Use
  Company Number: US-PFIZER INC-2016604452

PATIENT
  Age: 55 Year
  Sex: Female

DRUGS (4)
  1. LIPITOR [Suspect]
     Active Substance: ATORVASTATIN CALCIUM
     Indication: HYPERLIPIDAEMIA
     Dosage: 10 MG, DAILY
     Route: 048
     Dates: start: 20160623
  2. MOBIC [Concomitant]
     Active Substance: MELOXICAM
     Indication: ROTATOR CUFF SYNDROME
     Dosage: 15 MG, AS NEEDED (15 MG QD PRN)
  3. LYRICA [Concomitant]
     Active Substance: PREGABALIN
     Indication: FIBROMYALGIA
     Dosage: 75 MG, 3X/DAY (1 TBALET)
  4. LISINOPRIL. [Concomitant]
     Active Substance: LISINOPRIL
     Indication: HYPERTENSION
     Dosage: 10 MG, DAILY (1 TABLET)
     Route: 048

REACTIONS (2)
  - Drug hypersensitivity [Unknown]
  - Pain [Recovered/Resolved]
